FAERS Safety Report 19254504 (Version 2)
Quarter: 2021Q2

REPORT INFORMATION
  Report Type: Spontaneous
  Country: GB (occurrence: GB)
  Receive Date: 20210513
  Receipt Date: 20210514
  Transmission Date: 20210717
  Serious: Yes (Other)
  Sender: FDA-Public Use
  Company Number: GB-REGENERON PHARMACEUTICALS, INC.-2021-49338

PATIENT

DRUGS (2)
  1. BENEPALI [Suspect]
     Active Substance: ETANERCEPT
     Indication: RHEUMATOID ARTHRITIS
     Dosage: 50 MG, QW
     Route: 058
     Dates: start: 20190220
  2. PRALUENT [Suspect]
     Active Substance: ALIROCUMAB
     Indication: PRODUCT USED FOR UNKNOWN INDICATION
     Dosage: 150 MG, QW
     Route: 065

REACTIONS (9)
  - Rheumatoid arthritis [Unknown]
  - Lower respiratory tract infection [Unknown]
  - Pruritus [Unknown]
  - Wrong product administered [Unknown]
  - Vomiting [Unknown]
  - Product dispensing error [Unknown]
  - Pyrexia [Unknown]
  - Hypertension [Unknown]
  - Urticaria [Unknown]
